FAERS Safety Report 7376889-3 (Version None)
Quarter: 2011Q1

REPORT INFORMATION
  Report Type: 
  Country: None (occurrence: None)
  Receive Date: 20110327
  Receipt Date: 20110316
  Transmission Date: 20110831
  Serious: Yes (Life-Threatening, Hospitalization, Other)
  Sender: FDA-Public Use
  Company Number: AT-CELGENEUS-009-50794-11020271

PATIENT
  Age: 82 Year
  Sex: Male

DRUGS (8)
  1. VIDAZA [Suspect]
     Dosage: 60 MILLIGRAM
     Route: 050
     Dates: start: 20100705, end: 20100905
  2. VIDAZA [Suspect]
     Dosage: 125 MILLIGRAM
     Route: 050
     Dates: start: 20100510, end: 20100516
  3. VIDAZA [Suspect]
     Dosage: 83 MILLIGRAM
     Route: 050
     Dates: start: 20100927, end: 20101031
  4. RED BLOOD CELLS [Concomitant]
     Route: 051
  5. VIDAZA [Suspect]
     Dosage: 125 MILLIGRAM
     Route: 050
     Dates: start: 20100412, end: 20100418
  6. RED BLOOD CELLS [Concomitant]
     Dosage: 21 CONCENTRATES
     Route: 051
     Dates: start: 20100511, end: 20100702
  7. RED BLOOD CELLS [Concomitant]
     Route: 051
     Dates: start: 20100701, end: 20100701
  8. ERYTHROPOETIN [Concomitant]
     Route: 065

REACTIONS (5)
  - HAEMATOCHEZIA [None]
  - GENERAL PHYSICAL HEALTH DETERIORATION [None]
  - APLASIA [None]
  - FEBRILE NEUTROPENIA [None]
  - PNEUMONIA [None]
